FAERS Safety Report 9960122 (Version 1)
Quarter: 2014Q1

REPORT INFORMATION
  Report Type: Spontaneous
  Country: US (occurrence: None)
  Receive Date: 20140228
  Receipt Date: 20140228
  Transmission Date: 20141002
  Serious: Yes (Hospitalization)
  Sender: FDA-Public Use
  Company Number: UTC-044763

PATIENT
  Age: 78 Year
  Sex: Female

DRUGS (1)
  1. TYVASO [Suspect]
     Indication: PRODUCT USED FOR UNKNOWN INDICATION
     Route: 055
     Dates: start: 20131216, end: 20140212

REACTIONS (5)
  - Pleural effusion [None]
  - Cough [None]
  - Headache [None]
  - Throat irritation [None]
  - Diarrhoea [None]
